FAERS Safety Report 26028831 (Version 1)
Quarter: 2025Q4

REPORT INFORMATION
  Report Type: Spontaneous
  Country: CN (occurrence: CN)
  Receive Date: 20251112
  Receipt Date: 20251112
  Transmission Date: 20260117
  Serious: Yes (Hospitalization)
  Sender: ABBVIE
  Company Number: CN-ABBVIE-6535461

PATIENT
  Age: 51 Year
  Sex: Male
  Weight: 60 kg

DRUGS (5)
  1. VENETOCLAX [Suspect]
     Active Substance: VENETOCLAX
     Indication: Acute leukaemia
     Dosage: 400 MILLIGRAM
     Route: 048
     Dates: start: 20251005, end: 20251018
  2. CYTARABINE [Suspect]
     Active Substance: CYTARABINE
     Indication: Acute leukaemia
     Dosage: 200 MILLIGRAM?ROUTE OF ADMINISTRATION- INTRAVENOUS DRIP
     Route: 065
     Dates: start: 20251005, end: 20251012
  3. IDARUBICIN HYDROCHLORIDE [Suspect]
     Active Substance: IDARUBICIN HYDROCHLORIDE
     Indication: Acute leukaemia
     Dosage: 20 MILLIGRAM
     Route: 065
     Dates: start: 20251005, end: 20251006
  4. SODIUM CHLORIDE [Concomitant]
     Active Substance: SODIUM CHLORIDE
     Indication: Vehicle solution use
     Dosage: 500 ML?ROUTE OF ADMINISTRATION- INTRAVENOUS DRIP
     Dates: start: 20251005, end: 20251012
  5. SODIUM CHLORIDE [Concomitant]
     Active Substance: SODIUM CHLORIDE
     Indication: Vehicle solution use
     Dosage: 20 ML?ROUTE OF ADMINISTRATION- INTRAVENOUS DRIP
     Dates: start: 20251005, end: 20251006

REACTIONS (6)
  - Myelosuppression [Recovering/Resolving]
  - Dizziness [Unknown]
  - Fatigue [Unknown]
  - Anaemia [Recovering/Resolving]
  - White blood cell count decreased [Recovering/Resolving]
  - Platelet count decreased [Not Recovered/Not Resolved]

NARRATIVE: CASE EVENT DATE: 20251021
